FAERS Safety Report 21232689 (Version 6)
Quarter: 2022Q3

REPORT INFORMATION
  Report Type: Other
  Country: US (occurrence: None)
  Receive Date: 20220819
  Receipt Date: 20220907
  Transmission Date: 20221026
  Serious: No
  Sender: FDA-Public Use
  Company Number: US-ROCHE-3158945

PATIENT
  Sex: Female

DRUGS (1)
  1. OCREVUS [Suspect]
     Active Substance: OCRELIZUMAB
     Indication: Multiple sclerosis
     Route: 065

REACTIONS (4)
  - JC polyomavirus test positive [Unknown]
  - Antinuclear antibody positive [Unknown]
  - Oropharyngeal discomfort [Unknown]
  - Lip pain [Unknown]
